FAERS Safety Report 9694802 (Version 3)
Quarter: 2014Q2

REPORT INFORMATION
  Report Type: Report from Study
  Country: AU (occurrence: AU)
  Receive Date: 20131119
  Receipt Date: 20140521
  Transmission Date: 20141212
  Serious: Yes (Hospitalization)
  Sender: FDA-Public Use
  Company Number: AU-PFIZER INC-2013309165

PATIENT
  Age: 61 Year
  Sex: Male
  Weight: 71.2 kg

DRUGS (11)
  1. TEMSIROLIMUS [Suspect]
     Indication: MANTLE CELL LYMPHOMA
     Dosage: 175 MG, CYCLIC (ONCE WEEKLY FOR FIRST THREE WEEKS)
     Route: 042
     Dates: start: 20131004
  2. DESIPRAMINE [Suspect]
     Indication: MANTLE CELL LYMPHOMA
     Dosage: 50 MG, WEEKLY FOR TWO WEEKS
     Route: 048
     Dates: start: 20130927, end: 20131004
  3. VALACICLOVIR [Concomitant]
     Indication: ANTIVIRAL PROPHYLAXIS
     Dosage: 500 MG, 2X/DAY
     Route: 048
     Dates: start: 20130916
  4. RESPRIM FORTE [Concomitant]
     Indication: ANTIBIOTIC PROPHYLAXIS
     Dosage: 160/800MG TWICE WEEKLY (MONDAY AND THURSDAY)
     Route: 048
     Dates: start: 20130916
  5. FLUCONAZOLE [Concomitant]
     Indication: ANTIFUNGAL PROPHYLAXIS
     Dosage: 200 MG, 1X/DAY
     Route: 048
     Dates: start: 20130916
  6. FLUCONAZOLE [Concomitant]
     Indication: ORAL CANDIDIASIS
  7. AUGMENTIN DUO FORTE [Concomitant]
     Indication: EYE INFECTION
     Dosage: 875/125MG, TWICE DAILY
     Route: 048
     Dates: start: 20131025
  8. AUGMENTIN DUO FORTE [Concomitant]
     Dosage: 875/125MG, TWICE DAILY
     Route: 048
     Dates: start: 20131104
  9. OXYCODONE [Concomitant]
     Indication: PAIN
     Dosage: 5 MG, AS NEEDED
     Route: 048
     Dates: start: 20131025
  10. VANCOMYCIN [Concomitant]
     Indication: CLOSTRIDIUM DIFFICILE INFECTION
     Dosage: 125 MG, 4X/DAY
     Route: 048
     Dates: start: 20130926, end: 20131006
  11. MORPHINE [Concomitant]
     Indication: PAIN
     Dosage: 2.5-10 MG, AS NEEDED
     Route: 042
     Dates: start: 20131028, end: 20131028

REACTIONS (1)
  - Sinusitis [Recovered/Resolved]
